FAERS Safety Report 4433980-9 (Version None)
Quarter: 2004Q3

REPORT INFORMATION
  Report Type: 
  Country: None (occurrence: None)
  Receive Date: 20040825
  Receipt Date: 20040810
  Transmission Date: 20050211
  Serious: Yes (Hospitalization)
  Sender: FDA-Public Use
  Company Number: US_0405103141

PATIENT
  Age: 65 Year
  Sex: Female
  Weight: 90 kg

DRUGS (10)
  1. DULOXETINE HYDROCHLORIDE [Suspect]
     Indication: STRESS INCONTINENCE
     Dosage: 40 MG/2 DAY
     Dates: start: 20040415
  2. MULTI-VITAMIN [Concomitant]
  3. BUSPAR [Concomitant]
  4. PREMARIN [Concomitant]
  5. VITAMIN E [Concomitant]
  6. CALCIUM [Concomitant]
  7. ALLERGY SHOT [Concomitant]
  8. DITROPAN XL [Concomitant]
  9. ZITHROMAX [Concomitant]
  10. COUGH SYRUP WITH CODEINE [Concomitant]

REACTIONS (15)
  - ABDOMINAL PAIN UPPER [None]
  - ALANINE AMINOTRANSFERASE INCREASED [None]
  - ARTHROPOD BITE [None]
  - ASPARTATE AMINOTRANSFERASE INCREASED [None]
  - BLOOD ALKALINE PHOSPHATASE INCREASED [None]
  - BRONCHITIS ACUTE VIRAL [None]
  - DRUG HYPERSENSITIVITY [None]
  - HEPATOMEGALY [None]
  - MURPHY'S SIGN POSITIVE [None]
  - NAUSEA [None]
  - PYREXIA [None]
  - RASH MACULAR [None]
  - RENAL CYST [None]
  - SINUSITIS [None]
  - WHITE BLOOD CELL COUNT INCREASED [None]
